FAERS Safety Report 23076503 (Version 1)
Quarter: 2023Q4

REPORT INFORMATION
  Report Type: Spontaneous
  Country: US (occurrence: US)
  Receive Date: 20231017
  Receipt Date: 20231017
  Transmission Date: 20240109
  Serious: Yes (Other)
  Sender: FDA-Public Use
  Company Number: US-BAUSCHBL-2023BNL009820

PATIENT
  Age: 60 Year
  Sex: Female

DRUGS (6)
  1. PHENYLEPHRINE [Suspect]
     Active Substance: PHENYLEPHRINE HYDROCHLORIDE
     Indication: Hypotension
     Route: 065
  2. NOREPINEPHRINE [Suspect]
     Active Substance: NOREPINEPHRINE
     Indication: Hypotension
     Route: 065
  3. VASOPRESSIN [Suspect]
     Active Substance: VASOPRESSIN
     Indication: Hypotension
     Route: 065
  4. EPINEPHRINE [Suspect]
     Active Substance: EPINEPHRINE
     Indication: Hypotension
     Route: 042
  5. METHYLENE BLUE [Suspect]
     Active Substance: METHYLENE BLUE
     Indication: Hypotension
     Route: 065
  6. BARIUM [Concomitant]
     Active Substance: BARIUM
     Indication: Barium swallow

REACTIONS (1)
  - Therapy non-responder [Unknown]
